FAERS Safety Report 21778823 (Version 1)
Quarter: 2022Q4

REPORT INFORMATION
  Report Type: Spontaneous
  Country: US (occurrence: US)
  Receive Date: 20221226
  Receipt Date: 20221226
  Transmission Date: 20230113
  Serious: No
  Sender: FDA-Public Use
  Company Number: None

PATIENT
  Age: 40 Year
  Sex: Male

DRUGS (1)
  1. BETAINE ANHYDROUS [Suspect]
     Active Substance: BETAINE
     Indication: Product used for unknown indication
     Route: 048

REACTIONS (2)
  - Product dose omission issue [Unknown]
  - Product packaging issue [Unknown]
